FAERS Safety Report 4568344-0 (Version None)
Quarter: 2005Q1

REPORT INFORMATION
  Report Type: 
  Country: None (occurrence: None)
  Receive Date: 20050131
  Receipt Date: 20050125
  Transmission Date: 20050727
  Serious: Yes (Death)
  Sender: FDA-Public Use
  Company Number: J081-002-001836

PATIENT
  Age: 79 Year
  Sex: Female

DRUGS (5)
  1. ARICEPT [Suspect]
     Indication: DEMENTIA ALZHEIMER'S TYPE
     Dosage: 5 MG, 1 IN 1 D, ORAL
     Route: 048
     Dates: start: 20040614, end: 20040712
  2. SERMION (NICERGOLINE) [Suspect]
     Indication: LACUNAR INFARCTION
     Dosage: 10 MG, 2 IN 1 D, ORAL
     Route: 048
     Dates: start: 20040901
  3. LASIX [Suspect]
     Indication: CARDIAC FAILURE
     Dosage: 20 MG, 1 IN 1 D, ORAL
     Route: 048
     Dates: start: 20040712
  4. ALDACTONE [Suspect]
     Indication: CARDIAC FAILURE
     Dosage: 25 MG, 1 IN 1 D, ORAL
     Route: 048
     Dates: start: 20040712
  5. NITRODERM [Suspect]
     Indication: CARDIAC FAILURE
     Dosage: 1 DFX1, OD
     Dates: start: 20040712

REACTIONS (5)
  - CARDIAC FAILURE [None]
  - DECREASED ACTIVITY [None]
  - OEDEMA PERIPHERAL [None]
  - PLEURAL EFFUSION [None]
  - VENTRICULAR EXTRASYSTOLES [None]
